FAERS Safety Report 10284937 (Version 3)
Quarter: 2016Q2

REPORT INFORMATION
  Report Type: Report from Study
  Country: BR (occurrence: BR)
  Receive Date: 20140708
  Receipt Date: 20160425
  Transmission Date: 20160815
  Serious: Yes (Hospitalization, Other)
  Sender: FDA-Public Use
  Company Number: BR-GLAXOSMITHKLINE-A1080073A

PATIENT
  Age: 53 Year
  Sex: Female
  Weight: 135 kg

DRUGS (6)
  1. FLUTICASONE PROPIONATE+SALMETEROL XINAFOATE [Suspect]
     Active Substance: FLUTICASONE PROPIONATE\SALMETEROL XINAFOATE
     Indication: ASTHMA
     Dosage: 50/250 MCG1 DOSE 1 OR 2 TIMES A DAY, MULTI-DOSE POWDER INHALER (60DOSES)
     Route: 055
     Dates: start: 2004
  2. SIMVASTATIN. [Concomitant]
     Active Substance: SIMVASTATIN
     Indication: PRODUCT USED FOR UNKNOWN INDICATION
     Dosage: UNK
  3. ENALAPRIL [Concomitant]
     Active Substance: ENALAPRIL
     Indication: BLOOD PRESSURE MEASUREMENT
     Dosage: 1 DF, QD
     Route: 048
     Dates: start: 2004
  4. AMLODIPINE [Concomitant]
     Active Substance: AMLODIPINE BESYLATE
     Indication: PRODUCT USED FOR UNKNOWN INDICATION
     Dosage: UNK
  5. FLUTICASONE FUROATE + VILANTEROL TRIFENATATE [Suspect]
     Active Substance: FLUTICASONE FUROATE\VILANTEROL TRIFENATATE
     Indication: PRODUCT USED FOR UNKNOWN INDICATION
     Dosage: UNK
  6. SALBUTAMOL SULPHATE [Suspect]
     Active Substance: ALBUTEROL SULFATE
     Indication: ASTHMA
     Dosage: 4 TO 5 DOSES A DAY, PRN
     Route: 055
     Dates: start: 1973, end: 2004

REACTIONS (10)
  - Drug ineffective [Unknown]
  - Pneumonia [Unknown]
  - Fatigue [Unknown]
  - Eye pruritus [Unknown]
  - Heart rate increased [Unknown]
  - Respiratory distress [Unknown]
  - Nasopharyngitis [Unknown]
  - Hypersensitivity [Unknown]
  - Off label use [Unknown]
  - Eye irritation [Unknown]

NARRATIVE: CASE EVENT DATE: 201405
